FAERS Safety Report 7040623-7 (Version None)
Quarter: 2010Q4

REPORT INFORMATION
  Report Type: 
  Country: None (occurrence: None)
  Receive Date: 20101006
  Receipt Date: 20100929
  Transmission Date: 20110411
  Serious: Yes (Other)
  Sender: FDA-Public Use
  Company Number: DSA_43186_2010

PATIENT
  Sex: Female

DRUGS (20)
  1. XENAZINE [Suspect]
     Indication: BLEPHAROSPASM
     Dosage: (DF ORAL) ; (12.5 MG TID ORAL) ; (12.5 MG BID ORAL)
     Route: 048
     Dates: start: 20100101
  2. XENAZINE [Suspect]
     Indication: CHOREA
     Dosage: (DF ORAL) ; (12.5 MG TID ORAL) ; (12.5 MG BID ORAL)
     Route: 048
     Dates: start: 20100101
  3. XENAZINE [Suspect]
     Indication: DYSKINESIA
     Dosage: (DF ORAL) ; (12.5 MG TID ORAL) ; (12.5 MG BID ORAL)
     Route: 048
     Dates: start: 20100101
  4. XENAZINE [Suspect]
     Indication: MEIGE'S SYNDROME
     Dosage: (DF ORAL) ; (12.5 MG TID ORAL) ; (12.5 MG BID ORAL)
     Route: 048
     Dates: start: 20100101
  5. XENAZINE [Suspect]
     Indication: TARDIVE DYSKINESIA
     Dosage: (DF ORAL) ; (12.5 MG TID ORAL) ; (12.5 MG BID ORAL)
     Route: 048
     Dates: start: 20100101
  6. XENAZINE [Suspect]
     Indication: BLEPHAROSPASM
     Dosage: (DF ORAL) ; (12.5 MG TID ORAL) ; (12.5 MG BID ORAL)
     Route: 048
     Dates: start: 20100406
  7. XENAZINE [Suspect]
     Indication: CHOREA
     Dosage: (DF ORAL) ; (12.5 MG TID ORAL) ; (12.5 MG BID ORAL)
     Route: 048
     Dates: start: 20100406
  8. XENAZINE [Suspect]
     Indication: DYSKINESIA
     Dosage: (DF ORAL) ; (12.5 MG TID ORAL) ; (12.5 MG BID ORAL)
     Route: 048
     Dates: start: 20100406
  9. XENAZINE [Suspect]
     Indication: MEIGE'S SYNDROME
     Dosage: (DF ORAL) ; (12.5 MG TID ORAL) ; (12.5 MG BID ORAL)
     Route: 048
     Dates: start: 20100406
  10. XENAZINE [Suspect]
     Indication: TARDIVE DYSKINESIA
     Dosage: (DF ORAL) ; (12.5 MG TID ORAL) ; (12.5 MG BID ORAL)
     Route: 048
     Dates: start: 20100406
  11. METHOCARBAMOL [Concomitant]
     Indication: DYSTONIA
  12. CLONAZEPAM [Concomitant]
  13. OMEPRAZOLE [Concomitant]
  14. LISINOPRIL [Concomitant]
  15. SIMVASTATIN [Concomitant]
  16. LEVOTHYROXINE [Concomitant]
  17. OCUVITE /01053801/ [Concomitant]
  18. CYMBALTA [Concomitant]
  19. IBUPROFEN [Concomitant]
  20. VERAPAMIL [Concomitant]

REACTIONS (14)
  - AKATHISIA [None]
  - AREFLEXIA [None]
  - CHOKING [None]
  - COUGH [None]
  - DYSKINESIA [None]
  - FEELING DRUNK [None]
  - GRIMACING [None]
  - MUSCLE TIGHTNESS [None]
  - PAIN [None]
  - PARKINSONISM [None]
  - RHINORRHOEA [None]
  - SALIVA ALTERED [None]
  - SLEEP DISORDER [None]
  - THYROID DISORDER [None]
